FAERS Safety Report 7411327-3 (Version None)
Quarter: 2011Q2

REPORT INFORMATION
  Report Type: 
  Country: None (occurrence: None)
  Receive Date: 20110413
  Receipt Date: 20110405
  Transmission Date: 20111010
  Serious: Yes (Other)
  Sender: FDA-Public Use
  Company Number: US-RB-025242-11

PATIENT
  Age: 58 Year
  Sex: Female

DRUGS (1)
  1. SUBOXONE [Suspect]
     Indication: PRODUCT USED FOR UNKNOWN INDICATION
     Dosage: SUBOXONE FILM; DOSING INFORMATION UNKNOWN
     Route: 065

REACTIONS (3)
  - LUNG NEOPLASM MALIGNANT [None]
  - SUBSTANCE ABUSE [None]
  - EMPHYSEMA [None]
